FAERS Safety Report 19863637 (Version 2)
Quarter: 2021Q3

REPORT INFORMATION
  Report Type: Spontaneous
  Country: US (occurrence: US)
  Receive Date: 20210922
  Receipt Date: 20210928
  Transmission Date: 20211014
  Serious: No
  Sender: FDA-Public Use
  Company Number: US-JNJFOC-20210912833

PATIENT
  Age: 68 Year
  Sex: Male
  Weight: 93.07 kg

DRUGS (5)
  1. DOXYCYCLINE. [Concomitant]
     Active Substance: DOXYCYCLINE
  2. TRIAMCINOLONE [Concomitant]
     Active Substance: TRIAMCINOLONE
     Route: 065
  3. RESTASIS [Concomitant]
     Active Substance: CYCLOSPORINE
     Route: 047
  4. DULOXETINE. [Concomitant]
     Active Substance: DULOXETINE
  5. SIMPONI ARIA [Suspect]
     Active Substance: GOLIMUMAB
     Indication: PSORIATIC ARTHROPATHY
     Dosage: VIAL 12.50 MG/ML
     Route: 042
     Dates: start: 20210407, end: 20210712

REACTIONS (6)
  - Thinking abnormal [Unknown]
  - Adverse drug reaction [Unknown]
  - Abnormal weight gain [Not Recovered/Not Resolved]
  - Swelling [Unknown]
  - Peripheral swelling [Not Recovered/Not Resolved]
  - Pain [Unknown]

NARRATIVE: CASE EVENT DATE: 202107
